FAERS Safety Report 17731666 (Version 2)
Quarter: 2020Q2

REPORT INFORMATION
  Report Type: Spontaneous
  Country: US (occurrence: US)
  Receive Date: 20200501
  Receipt Date: 20200529
  Transmission Date: 20200714
  Serious: No
  Sender: FDA-Public Use
  Company Number: US-ETHYPHARM-202000712

PATIENT
  Sex: Female

DRUGS (1)
  1. BUPRENORPHINE. [Suspect]
     Active Substance: BUPRENORPHINE
     Indication: PRODUCT USED FOR UNKNOWN INDICATION
     Dosage: EXPIRY DATE. 07/31/2021
     Route: 060

REACTIONS (5)
  - Product quality issue [Unknown]
  - Burning sensation [Unknown]
  - Stomatitis [Unknown]
  - Product substitution issue [Unknown]
  - Product size issue [Unknown]
